FAERS Safety Report 19955673 (Version 1)
Quarter: 2021Q4

REPORT INFORMATION
  Report Type: Report from Study
  Country: GB (occurrence: GB)
  Receive Date: 20211014
  Receipt Date: 20211014
  Transmission Date: 20220303
  Serious: Yes (Other)
  Sender: FDA-Public Use
  Company Number: GB-NOVARTISPH-NVSC2021GB156963

PATIENT
  Sex: Male

DRUGS (1)
  1. OMNITROPE [Suspect]
     Active Substance: SOMATROPIN
     Indication: Product used for unknown indication
     Dosage: 1.2 MG, (ASD) (SUREPAL)
     Route: 065
     Dates: start: 20210305

REACTIONS (3)
  - Femur fracture [Recovered/Resolved]
  - Sports injury [Recovered/Resolved]
  - Arthralgia [Unknown]
